FAERS Safety Report 5896743-3 (Version None)
Quarter: 2008Q3

REPORT INFORMATION
  Report Type: 
  Country: None (occurrence: None)
  Receive Date: 20080924
  Receipt Date: 20071016
  Transmission Date: 20090109
  Serious: Yes (Other)
  Sender: FDA-Public Use
  Company Number: US-ASTRAZENECA-2007UW24097

PATIENT
  Age: 30 Year
  Sex: Female

DRUGS (6)
  1. SEROQUEL [Suspect]
     Route: 048
  2. SEROQUEL [Suspect]
     Route: 048
  3. BETA BLOCKER [Suspect]
  4. HALDOL [Concomitant]
  5. COGENTIN [Concomitant]
  6. THYROID MEDICATION [Concomitant]

REACTIONS (2)
  - DIZZINESS [None]
  - ELECTROCARDIOGRAM QT PROLONGED [None]
